FAERS Safety Report 4761230-2 (Version None)
Quarter: 2005Q3

REPORT INFORMATION
  Report Type: 
  Country: None (occurrence: None)
  Receive Date: 20050901
  Receipt Date: 20050817
  Transmission Date: 20060218
  Serious: Yes (Hospitalization)
  Sender: FDA-Public Use
  Company Number: 2005PL000062

PATIENT
  Age: 67 Year
  Sex: Male

DRUGS (7)
  1. AZATHIOPRINE [Suspect]
     Indication: CUTANEOUS LUPUS ERYTHEMATOSUS
     Dosage: 100 MG; QD; PO
     Route: 048
  2. METHYLPREDNISOLONE [Concomitant]
  3. METHYLPREDNISOLONE [Concomitant]
  4. MOMETASONE [Concomitant]
  5. BETAMETHASONE [Concomitant]
  6. RANITIDINE [Concomitant]
  7. METHYLPREDNISOLONE [Concomitant]

REACTIONS (5)
  - BLOOD BILIRUBIN INCREASED [None]
  - HEPATITIS [None]
  - HEPATITIS CHOLESTATIC [None]
  - LEUKOCYTOSIS [None]
  - PLATELET COUNT DECREASED [None]
